FAERS Safety Report 14204203 (Version 1)
Quarter: 2017Q4

REPORT INFORMATION
  Report Type: Spontaneous
  Country: BG (occurrence: BG)
  Receive Date: 20171120
  Receipt Date: 20171120
  Transmission Date: 20180321
  Serious: Yes (Hospitalization, Other)
  Sender: FDA-Public Use
  Company Number: BG-B.I. PHARMACEUTICALS,INC./RIDGEFIELD-2017-BI-060851

PATIENT
  Age: 60 Year
  Sex: Female

DRUGS (2)
  1. GILOTRIF [Suspect]
     Active Substance: AFATINIB
     Route: 065
     Dates: start: 201612
  2. GILOTRIF [Suspect]
     Active Substance: AFATINIB
     Indication: NEOPLASM MALIGNANT
     Route: 065
     Dates: start: 20150628, end: 201612

REACTIONS (11)
  - Decreased appetite [Unknown]
  - Metastases to central nervous system [Unknown]
  - Gastrointestinal disorder [Unknown]
  - Paronychia [Unknown]
  - Loss of consciousness [Unknown]
  - Rash [Unknown]
  - Rash [Unknown]
  - Malignant neoplasm progression [Unknown]
  - Vertigo [Unknown]
  - Headache [Unknown]
  - Diarrhoea [Unknown]

NARRATIVE: CASE EVENT DATE: 201612
